FAERS Safety Report 8803908 (Version 1)
Quarter: 2012Q4

REPORT INFORMATION
  Report Type: 
  Country: US (occurrence: US)
  Receive Date: 20120924
  Receipt Date: 20120924
  Transmission Date: 20130627
  Serious: No
  Sender: FDA-Public Use
  Company Number: US-PFIZER INC-2012234923

PATIENT
  Age: 31 Year
  Sex: Male
  Weight: 79.37 kg

DRUGS (3)
  1. NEURONTIN [Suspect]
     Indication: ARTHROPATHY
     Dosage: UNK
  2. NEURONTIN [Suspect]
     Indication: INTERVERTEBRAL DISC DEGENERATION
     Dosage: 600 mg, 4x/day
     Dates: start: 201207
  3. IBUPROFEN [Concomitant]
     Dosage: 800 mg, 4x/day

REACTIONS (6)
  - Constipation [Not Recovered/Not Resolved]
  - Malaise [Not Recovered/Not Resolved]
  - Pyrexia [Not Recovered/Not Resolved]
  - Pain [Not Recovered/Not Resolved]
  - Asthenia [Not Recovered/Not Resolved]
  - Malaise [Not Recovered/Not Resolved]
